FAERS Safety Report 13102276 (Version 1)
Quarter: 2017Q1

REPORT INFORMATION
  Report Type: Spontaneous
  Country: US (occurrence: US)
  Receive Date: 20170110
  Receipt Date: 20170110
  Transmission Date: 20170428
  Serious: No
  Sender: FDA-Public Use
  Company Number: US-DRREDDYS-USA/USA/16/0055270

PATIENT
  Age: 18 Year
  Sex: Female

DRUGS (1)
  1. IBUPROFEN 400, 600, 800 MG [Suspect]
     Active Substance: IBUPROFEN
     Indication: ARTHRALGIA
     Route: 048
     Dates: start: 201508

REACTIONS (3)
  - Condition aggravated [Not Recovered/Not Resolved]
  - Product quality issue [Unknown]
  - Arthralgia [Not Recovered/Not Resolved]

NARRATIVE: CASE EVENT DATE: 201508
